FAERS Safety Report 7085595-4 (Version None)
Quarter: 2010Q4

REPORT INFORMATION
  Report Type: 
  Country: None (occurrence: None)
  Receive Date: 20101001
  Receipt Date: 20100628
  Transmission Date: 20110411
  Serious: No
  Sender: FDA-Public Use
  Company Number: 1000014757

PATIENT
  Age: 50 Year
  Sex: Female

DRUGS (3)
  1. BYSTOLIC [Suspect]
     Indication: HYPERTENSION
     Dosage: 2.5 MG (2.5 MG, 1 IN 1 D), ORAL
     Route: 048
     Dates: start: 20100601
  2. SYNTHROID [Suspect]
     Indication: HYPOTHYROIDISM
     Dosage: 37 MCG (37 MCG, 1 IN 1 D), ORAL
     Route: 048
     Dates: start: 20060101, end: 20100601
  3. SYNTHROID [Suspect]
     Indication: HYPOTHYROIDISM
     Dosage: 37 MCG (37 MCG, 1 IN 1 D), ORAL
     Route: 048
     Dates: start: 20100601

REACTIONS (7)
  - CHEST DISCOMFORT [None]
  - DIZZINESS [None]
  - DRUG INTERACTION [None]
  - ERYTHEMA [None]
  - MUSCLE SPASMS [None]
  - PARAESTHESIA [None]
  - SENSATION OF FOREIGN BODY [None]
